FAERS Safety Report 19548574 (Version 1)
Quarter: 2021Q3

REPORT INFORMATION
  Report Type: Spontaneous
  Country: US (occurrence: US)
  Receive Date: 20210715
  Receipt Date: 20210715
  Transmission Date: 20211014
  Serious: Yes (Disabling)
  Sender: FDA-Public Use
  Company Number: None

PATIENT
  Age: 32 Year
  Sex: Female
  Weight: 78.75 kg

DRUGS (4)
  1. VITAMIN C, D, B [Concomitant]
  2. ZINC. [Concomitant]
     Active Substance: ZINC
  3. NEUTROGENA ULTRA SHEER BODY MIST SUNSCRN BR^D SPECT SPF 30 (AVOB\HOMO\OCTI\OCTO) [Suspect]
     Active Substance: AVOBENZONE\HOMOSALATE\OCTISALATE\OCTOCRYLENE
     Indication: PROPHYLAXIS AGAINST SOLAR RADIATION
     Dates: start: 20210405, end: 20210622
  4. BIRTH CONTROL PILL [Concomitant]
     Active Substance: UNSPECIFIED INGREDIENT

REACTIONS (4)
  - Application site rash [None]
  - Urticaria [None]
  - Recalled product administered [None]
  - Rash [None]

NARRATIVE: CASE EVENT DATE: 20210622
